FAERS Safety Report 24707003 (Version 1)
Quarter: 2024Q4

REPORT INFORMATION
  Report Type: Spontaneous
  Country: US (occurrence: US)
  Receive Date: 20241206
  Receipt Date: 20241206
  Transmission Date: 20250115
  Serious: No
  Sender: PFIZER
  Company Number: US-PFIZER INC-202400315730

PATIENT
  Age: 55 Year
  Sex: Female

DRUGS (1)
  1. DUAVEE [Suspect]
     Active Substance: BAZEDOXIFENE ACETATE\ESTROGENS, CONJUGATED
     Dosage: UNK
     Dates: start: 20241111

REACTIONS (8)
  - Oral pain [Unknown]
  - Aphthous ulcer [Unknown]
  - Glossodynia [Unknown]
  - Oral pruritus [Unknown]
  - Oropharyngeal pain [Unknown]
  - Throat irritation [Unknown]
  - Ageusia [Unknown]
  - Feeling abnormal [Unknown]

NARRATIVE: CASE EVENT DATE: 20241101
